FAERS Safety Report 7650148-3 (Version None)
Quarter: 2011Q3

REPORT INFORMATION
  Report Type: 
  Country: None (occurrence: None)
  Receive Date: 20110719
  Receipt Date: 20101108
  Transmission Date: 20111222
  Serious: Yes (Other)
  Sender: FDA-Public Use
  Company Number: 163-50794-10111543

PATIENT
  Sex: Male

DRUGS (5)
  1. ATENOLOL [Concomitant]
  2. HYDROCODONE (HYDROCODONE) [Concomitant]
  3. SYNTHROID [Concomitant]
  4. VIDAZA [Suspect]
     Indication: MYELODYSPLASTIC SYNDROME
     Dosage: FOR 7 DAYS
  5. PREDNISONE [Concomitant]

REACTIONS (1)
  - PANCYTOPENIA [None]
